FAERS Safety Report 7731001-3 (Version None)
Quarter: 2011Q3

REPORT INFORMATION
  Report Type: 
  Country: None (occurrence: None)
  Receive Date: 20110906
  Receipt Date: 20110826
  Transmission Date: 20111222
  Serious: Yes (Life-Threatening, Hospitalization)
  Sender: FDA-Public Use
  Company Number: AE-US-EMD SERONO, INC.-7079187

PATIENT
  Age: 20 Year
  Sex: Female

DRUGS (1)
  1. CHORIOGONADOTROPIN ALFA [Suspect]
     Indication: OVULATION INDUCTION

REACTIONS (6)
  - OVARIAN RUPTURE [None]
  - PLEURAL EFFUSION [None]
  - ASCITES [None]
  - OVARIAN HYPERSTIMULATION SYNDROME [None]
  - OVARIAN ENLARGEMENT [None]
  - PERITONEAL HAEMORRHAGE [None]
